FAERS Safety Report 13334603 (Version 1)
Quarter: 2017Q1

REPORT INFORMATION
  Report Type: Spontaneous
  Country: JP (occurrence: JP)
  Receive Date: 20170314
  Receipt Date: 20170314
  Transmission Date: 20170428
  Serious: Yes (Hospitalization)
  Sender: FDA-Public Use
  Company Number: JP-PFIZER INC-2017102105

PATIENT
  Age: 50 Year
  Sex: Male

DRUGS (3)
  1. AMIKACIN [Suspect]
     Active Substance: AMIKACIN
     Indication: ENTEROBACTER INFECTION
     Dosage: 600 MG, 3X/WEEK AFTER DIALYSIS
     Route: 041
     Dates: start: 20170213
  2. TYGACIL [Suspect]
     Active Substance: TIGECYCLINE
     Indication: ENTEROBACTER INFECTION
     Dosage: 100 MG, DAILY
     Route: 041
     Dates: start: 20170213
  3. NAFATAT [Suspect]
     Active Substance: NAFAMOSTAT MESYLATE
     Indication: DISSEMINATED INTRAVASCULAR COAGULATION
     Dosage: UNK
     Route: 058
     Dates: start: 20170219, end: 20170306

REACTIONS (3)
  - Blood alkaline phosphatase increased [Not Recovered/Not Resolved]
  - Gamma-glutamyltransferase increased [Not Recovered/Not Resolved]
  - Blood bilirubin unconjugated increased [Not Recovered/Not Resolved]

NARRATIVE: CASE EVENT DATE: 20170225
